FAERS Safety Report 23844776 (Version 4)
Quarter: 2024Q3

REPORT INFORMATION
  Report Type: Spontaneous
  Country: JP (occurrence: JP)
  Receive Date: 20240511
  Receipt Date: 20240716
  Transmission Date: 20241017
  Serious: Yes (Hospitalization, Other)
  Sender: ABBVIE
  Company Number: JP-ABBVIE-5750920

PATIENT
  Age: 58 Year
  Sex: Female
  Weight: 30 kg

DRUGS (11)
  1. HUMIRA [Suspect]
     Active Substance: ADALIMUMAB
     Indication: Pyoderma gangrenosum
     Dosage: FORM STRENGTH 40 MILLIGRAM
     Route: 058
     Dates: start: 202104
  2. HUMIRA [Suspect]
     Active Substance: ADALIMUMAB
     Dosage: FORM STRENGTH 40 MILLIGRAM
     Route: 058
  3. REBAMIPIDE [Concomitant]
     Active Substance: REBAMIPIDE
     Indication: Prophylaxis against gastrointestinal ulcer
     Dosage: TIME INTERVAL: 0.33333333 DAYS: 300 MILLIGRAM
     Route: 048
     Dates: start: 20240425
  4. PREDNISOLONE [Concomitant]
     Active Substance: PREDNISOLONE
     Indication: Rheumatoid arthritis
     Route: 048
  5. PREDNISOLONE [Concomitant]
     Active Substance: PREDNISOLONE
     Indication: Rheumatoid arthritis
     Route: 048
  6. SODIUM FERROUS CITRATE [Concomitant]
     Active Substance: SODIUM FERROUS CITRATE
     Indication: Iron deficiency
     Dosage: 100 MILLIGRAM
     Route: 048
  7. Adenosine triphosphate disodium hydrate [Concomitant]
     Indication: Supraventricular tachycardia
     Dates: start: 20240501
  8. ACETAMINOPHEN [Concomitant]
     Active Substance: ACETAMINOPHEN
     Indication: Pain
     Dosage: TIME INTERVAL: 0.33333333 DAYS: 900 MILLIGRAM
     Route: 048
     Dates: start: 20240424
  9. SULFAMETHOXAZOLE AND TRIMETHOPRIM [Concomitant]
     Active Substance: SULFAMETHOXAZOLE\TRIMETHOPRIM
     Indication: Antifungal prophylaxis
     Dosage: TIME INTERVAL: 0.33333333 DAYS: 9 GRAM
     Route: 048
     Dates: start: 20240430
  10. ALFA-TOCOPHEROL NICOTINATE [Concomitant]
     Indication: Peripheral vascular disorder
     Dosage: TIME INTERVAL: 0.33333333 DAYS: 300 MILLIGRAM
     Route: 048
  11. BAZEDOXIFENE ACETATE [Concomitant]
     Active Substance: BAZEDOXIFENE ACETATE
     Indication: Osteoporosis
     Dosage: 20 MILLIGRAM
     Route: 048

REACTIONS (10)
  - Supraventricular tachycardia [Recovered/Resolved]
  - Malnutrition [Recovering/Resolving]
  - Decreased appetite [Unknown]
  - Inappropriate schedule of product administration [Unknown]
  - Anaemia [Recovering/Resolving]
  - Dehydration [Recovered/Resolved]
  - Palpitations [Unknown]
  - Thirst [Unknown]
  - Chest discomfort [Unknown]
  - Hypoaesthesia [Unknown]

NARRATIVE: CASE EVENT DATE: 20240424
